FAERS Safety Report 8226947-6 (Version None)
Quarter: 2012Q1

REPORT INFORMATION
  Report Type: 
  Country: None (occurrence: None)
  Receive Date: 20120322
  Receipt Date: 20110712
  Transmission Date: 20120608
  Serious: No
  Sender: FDA-Public Use
  Company Number: US-MYLANLABS-2011S1013934

PATIENT
  Age: 33 Year
  Sex: Male

DRUGS (1)
  1. PROPRANOLOL HYDROCHLORIDE [Suspect]
     Indication: MIGRAINE
     Route: 048
     Dates: start: 20110616, end: 20110601

REACTIONS (4)
  - PALPITATIONS [None]
  - UNEVALUABLE EVENT [None]
  - DRUG INEFFECTIVE [None]
  - MIGRAINE [None]
